FAERS Safety Report 5055415-8 (Version None)
Quarter: 2006Q3

REPORT INFORMATION
  Report Type: 
  Country: None (occurrence: None)
  Receive Date: 20060717
  Receipt Date: 20060717
  Transmission Date: 20061208
  Serious: Yes (Hospitalization)
  Sender: FDA-Public Use
  Company Number: None

PATIENT
  Age: 55 Year
  Sex: Female

DRUGS (8)
  1. TAMOXIFEN CITRATE [Suspect]
     Indication: BREAST CANCER
     Dosage: 20MG  PO  BID   (DURATION: SINCE 2002)
     Route: 048
     Dates: start: 20020101
  2. VYTORIN [Concomitant]
  3. CALCIUM GLUCONATE [Concomitant]
  4. ACTONEL [Concomitant]
  5. PREVACID [Concomitant]
  6. VERAPAMIL [Concomitant]
  7. AGGRENOX [Concomitant]
  8. HYZAAR [Concomitant]

REACTIONS (2)
  - DEEP VEIN THROMBOSIS [None]
  - PULMONARY EMBOLISM [None]
